FAERS Safety Report 8890516 (Version 1)
Quarter: 2012Q4

REPORT INFORMATION
  Report Type: 
  Country: US (occurrence: US)
  Receive Date: 20121106
  Receipt Date: 20121106
  Transmission Date: 20130627
  Serious: No
  Sender: FDA-Public Use
  Company Number: US-TEVA-368379USA

PATIENT
  Sex: Male

DRUGS (2)
  1. TREANDA [Suspect]
     Indication: NON-HODGKIN^S LYMPHOMA
  2. RITUXIMAB [Suspect]

REACTIONS (1)
  - Fatigue [Unknown]
